FAERS Safety Report 6722661-4 (Version None)
Quarter: 2010Q2

REPORT INFORMATION
  Report Type: 
  Country: None (occurrence: None)
  Receive Date: 20100512
  Receipt Date: 20100419
  Transmission Date: 20101027
  Serious: Yes (Hospitalization, Other)
  Sender: FDA-Public Use
  Company Number: PHHY2010FR28971

PATIENT
  Age: 55 Year
  Sex: Male

DRUGS (5)
  1. SIMULECT [Suspect]
     Indication: LIVER TRANSPLANT
  2. CORTICOSTEROIDS [Concomitant]
  3. MYCOPHENOLATE MOFETIL [Concomitant]
  4. TACROLIMUS [Concomitant]
  5. RITUXIMAB [Concomitant]
     Dosage: 375 MG/M2, UNK
     Route: 042

REACTIONS (6)
  - ASTHENIA [None]
  - CHOLESTASIS [None]
  - CONFUSIONAL STATE [None]
  - CYTOLYTIC HEPATITIS [None]
  - RESPIRATORY FAILURE [None]
  - TREMOR [None]
